FAERS Safety Report 6160729-4 (Version None)
Quarter: 2009Q2

REPORT INFORMATION
  Report Type: 
  Country: None (occurrence: None)
  Receive Date: 20090420
  Receipt Date: 20090410
  Transmission Date: 20091009
  Serious: Yes (Hospitalization)
  Sender: FDA-Public Use
  Company Number: JP-PFIZER INC-2009197164

PATIENT

DRUGS (8)
  1. IRINOTECAN HCL [Suspect]
     Indication: RECTAL CANCER
     Dosage: 180 MG, UNK
     Route: 042
     Dates: start: 20081029, end: 20090121
  2. ERBITUX [Suspect]
     Indication: RECTAL CANCER
     Dosage: 400 MG/M, ONCE
     Route: 042
     Dates: start: 20081029, end: 20081029
  3. ERBITUX [Suspect]
     Dosage: 250 MG/M2, WEEKLY
     Route: 042
     Dates: end: 20090121
  4. CHLOR-TRIMETON [Concomitant]
     Indication: PREMEDICATION
     Dosage: 10 MG, WEEKLY
     Route: 042
     Dates: start: 20081029, end: 20090121
  5. DEXAMETHASONE SODIUM PHOSPHATE [Concomitant]
     Indication: PREMEDICATION
     Dosage: 8 MG, WEEKLY
     Route: 042
     Dates: start: 20081029, end: 20090121
  6. KYTRIL [Concomitant]
     Indication: PREMEDICATION
     Dosage: 3 MG, WEEKLY
     Route: 042
     Dates: start: 20081029, end: 20090121
  7. HACHIAZULE [Concomitant]
     Indication: PROPHYLAXIS
     Dosage: 8 MG, UNK
     Route: 048
     Dates: start: 20081105, end: 20081112
  8. CLEANAL [Concomitant]
     Indication: PRODUCTIVE COUGH
     Dosage: 400 MG, 3X/DAY
     Route: 048
     Dates: start: 20081029

REACTIONS (5)
  - CELLULITIS [None]
  - DEEP VEIN THROMBOSIS [None]
  - ERYTHEMA MULTIFORME [None]
  - PRURITUS [None]
  - RASH [None]
